FAERS Safety Report 5509358-3 (Version None)
Quarter: 2007Q4

REPORT INFORMATION
  Report Type: 
  Country: None (occurrence: None)
  Receive Date: 20071107
  Receipt Date: 20071026
  Transmission Date: 20080405
  Serious: Yes (Other)
  Sender: FDA-Public Use
  Company Number: JP-PFIZER INC-2007090968

PATIENT
  Age: 70 Year
  Sex: Male

DRUGS (9)
  1. SULPERAZON [Suspect]
     Route: 042
  2. ANTIHYPERTENSIVES [Concomitant]
  3. ALL OTHER THERAPEUTIC PRODUCTS [Concomitant]
  4. CARDIOVASCULAR SYSTEM DRUGS [Concomitant]
  5. WARFARIN SODIUM [Concomitant]
  6. ALL OTHER THERAPEUTIC PRODUCTS [Concomitant]
  7. ALLOPURINOL [Concomitant]
  8. ONON [Concomitant]
  9. FUTHAN [Concomitant]

REACTIONS (1)
  - CARDIAC ARREST [None]
